FAERS Safety Report 8609531-1 (Version None)
Quarter: 2012Q3

REPORT INFORMATION
  Report Type: 
  Country: None (occurrence: None)
  Receive Date: 20120821
  Receipt Date: 20120815
  Transmission Date: 20120928
  Serious: Yes (Other)
  Sender: FDA-Public Use
  Company Number: US-PFIZER INC-2012200874

PATIENT
  Age: 66 Year
  Sex: Female
  Weight: 73 kg

DRUGS (7)
  1. VALIUM [Concomitant]
     Indication: ANXIETY
     Dosage: 5 MG, AS NEEDED
  2. LORTAB [Concomitant]
     Indication: RHEUMATOID ARTHRITIS
  3. CELEXA [Concomitant]
     Indication: DEPRESSION
     Dosage: UNK
  4. PREMARIN [Suspect]
     Dosage: 0.9 MG, DAILY
  5. ASPIRIN [Concomitant]
     Dosage: 81MG, DAILY
  6. LORTAB [Concomitant]
     Indication: FIBROMYALGIA
     Dosage: UNK, AS NEEDED
  7. LISINOPRIL [Concomitant]
     Indication: BLOOD PRESSURE ABNORMAL
     Dosage: UNK

REACTIONS (4)
  - MYOCARDIAL INFARCTION [None]
  - PAIN [None]
  - CORONARY ARTERY OCCLUSION [None]
  - CORONARY ARTERY THROMBOSIS [None]
